FAERS Safety Report 5860332-7 (Version None)
Quarter: 2008Q3

REPORT INFORMATION
  Report Type: 
  Country: None (occurrence: None)
  Receive Date: 20080827
  Receipt Date: 20070803
  Transmission Date: 20090109
  Serious: No
  Sender: FDA-Public Use
  Company Number: US-ABBOTT-07P-163-0376605-00

PATIENT
  Sex: Female
  Weight: 110 kg

DRUGS (5)
  1. NIASPAN [Suspect]
     Indication: HIGH DENSITY LIPOPROTEIN DECREASED
     Route: 048
     Dates: start: 20070701, end: 20070701
  2. ESOMEPRAZOLE MAGNESIUM [Concomitant]
     Indication: GASTROOESOPHAGEAL REFLUX DISEASE
     Route: 048
  3. EZETIMIBE [Concomitant]
     Indication: BLOOD CHOLESTEROL
  4. ALTOPREZ [Concomitant]
     Indication: BLOOD CHOLESTEROL
  5. FISH OIL [Concomitant]
     Indication: HIGH DENSITY LIPOPROTEIN DECREASED

REACTIONS (2)
  - FLATULENCE [None]
  - GASTRIC DISORDER [None]
